FAERS Safety Report 12411078 (Version 1)
Quarter: 2016Q2

REPORT INFORMATION
  Report Type: Spontaneous
  Country: US (occurrence: US)
  Receive Date: 20160527
  Receipt Date: 20160527
  Transmission Date: 20160815
  Serious: No
  Sender: FDA-Public Use
  Company Number: US-BAYER-2016-100093

PATIENT
  Age: 18 Month
  Sex: Male

DRUGS (2)
  1. A AND D [Suspect]
     Active Substance: DIMETHICONE\PETROLATUM\ZINC OXIDE
     Indication: DERMATITIS DIAPER
  2. MIRALAX [Suspect]
     Active Substance: POLYETHYLENE GLYCOL 3350
     Indication: CONSTIPATION

REACTIONS (3)
  - Product use issue [None]
  - Accidental exposure to product by child [None]
  - Accidental exposure to product [None]

NARRATIVE: CASE EVENT DATE: 20160523
